FAERS Safety Report 6889910-3 (Version None)
Quarter: 2010Q3

REPORT INFORMATION
  Report Type: 
  Country: None (occurrence: None)
  Receive Date: 20100730
  Receipt Date: 20080618
  Transmission Date: 20110219
  Serious: Yes (Other)
  Sender: FDA-Public Use
  Company Number: US-PFIZER INC-2008048023

PATIENT
  Sex: Male
  Weight: 90 kg

DRUGS (4)
  1. LIPITOR [Suspect]
     Indication: BLOOD CHOLESTEROL INCREASED
     Dates: start: 20040101, end: 20080605
  2. ACETYLSALICYLIC ACID SRT [Concomitant]
  3. NIFEDIPINE [Concomitant]
  4. AMARYL [Concomitant]

REACTIONS (5)
  - BLOOD CHOLESTEROL INCREASED [None]
  - CHEST DISCOMFORT [None]
  - HYPERVENTILATION [None]
  - PAIN [None]
  - STRESS [None]
